FAERS Safety Report 5727097-0 (Version None)
Quarter: 2008Q2

REPORT INFORMATION
  Report Type: 
  Country: None (occurrence: None)
  Receive Date: 20080505
  Receipt Date: 20080422
  Transmission Date: 20081010
  Serious: Yes (Hospitalization)
  Sender: FDA-Public Use
  Company Number: JP-JNJFOC-20080406901

PATIENT
  Sex: Male

DRUGS (11)
  1. LEVOFLOXACIN [Suspect]
     Indication: UPPER RESPIRATORY TRACT INFLAMMATION
     Route: 048
  2. DASEN [Concomitant]
     Indication: UPPER RESPIRATORY TRACT INFLAMMATION
     Route: 065
  3. PELEX [Concomitant]
     Indication: UPPER RESPIRATORY TRACT INFLAMMATION
     Route: 065
  4. ENALAPRIL MALEATE [Concomitant]
     Indication: HYPERTENSION
     Route: 065
  5. BUFFERIN [Concomitant]
     Indication: CEREBRAL INFARCTION
     Route: 065
  6. CYANOCOBALAMIN [Concomitant]
     Indication: CEREBRAL INFARCTION
     Route: 065
  7. MAGNESIUM OXIDE [Concomitant]
     Route: 065
  8. FAMOTIDINE [Concomitant]
     Indication: DUODENAL ULCER
     Route: 065
  9. SOLON [Concomitant]
     Indication: DUODENAL ULCER
     Route: 065
  10. ZYRTEC [Concomitant]
     Indication: UPPER RESPIRATORY TRACT INFLAMMATION
  11. MUCOSAL-L [Concomitant]
     Indication: UPPER RESPIRATORY TRACT INFLAMMATION

REACTIONS (1)
  - INTERSTITIAL LUNG DISEASE [None]
